FAERS Safety Report 15408192 (Version 1)
Quarter: 2018Q3

REPORT INFORMATION
  Report Type: Spontaneous
  Country: US (occurrence: US)
  Receive Date: 20180920
  Receipt Date: 20180920
  Transmission Date: 20181010
  Serious: No
  Sender: FDA-Public Use
  Company Number: US-PFIZER INC-2018033347

PATIENT
  Age: 14 Month
  Sex: Male

DRUGS (2)
  1. EUCRISA [Suspect]
     Active Substance: CRISABOROLE
     Indication: DERMATITIS
     Dosage: UNK, 2X/DAY (APPLY TO AFFECTED AREAS TWICE A DAY)
  2. EUCRISA [Suspect]
     Active Substance: CRISABOROLE
     Dosage: UNK

REACTIONS (3)
  - Burning sensation [Unknown]
  - Drug administered to patient of inappropriate age [Unknown]
  - Drug ineffective for unapproved indication [Unknown]
